FAERS Safety Report 5952278-0 (Version None)
Quarter: 2008Q4

REPORT INFORMATION
  Report Type: 
  Country: None (occurrence: None)
  Receive Date: 20081022
  Receipt Date: 20080804
  Transmission Date: 20090506
  Serious: No
  Sender: FDA-Public Use
  Company Number: SPV1-2008-01667

PATIENT
  Age: 9 Year
  Sex: Female
  Weight: 27.7 kg

DRUGS (3)
  1. VYVANSE [Suspect]
     Dosage: 70 MG, 1X/DAY:QD
     Dates: start: 20070101
  2. PROZAC /00724401/ (FLUOXETINE) [Concomitant]
  3. RITALIN [Concomitant]

REACTIONS (3)
  - AGGRESSION [None]
  - INSOMNIA [None]
  - IRRITABILITY [None]
